FAERS Safety Report 9632500 (Version 1)
Quarter: 2013Q4

REPORT INFORMATION
  Report Type: Report from Study
  Country: US (occurrence: US)
  Receive Date: 20131018
  Receipt Date: 20131018
  Transmission Date: 20140711
  Serious: Yes (Death)
  Sender: FDA-Public Use
  Company Number: US-ASTRAZENECA-2013SE76715

PATIENT
  Age: 61 Year
  Sex: Female

DRUGS (7)
  1. SYMBICORT [Suspect]
     Indication: CHRONIC OBSTRUCTIVE PULMONARY DISEASE
     Dosage: 160/ 4.5 MCG 2 PUFFS , BID
     Route: 055
     Dates: start: 201306, end: 201309
  2. SYMBICORT [Suspect]
     Indication: PULMONARY MASS
     Dosage: 160/ 4.5 MCG 2 PUFFS , BID
     Route: 055
     Dates: start: 201306, end: 201309
  3. TUDORZA PRESSAIR INHALER [Concomitant]
     Dosage: 400 MCG 1 INHALATION, BID
     Route: 055
     Dates: start: 20130726
  4. VENTOLIN HFA INHALER [Concomitant]
     Dosage: 108 MCG 1-2 PUFFS, Q4H
     Route: 055
     Dates: start: 20130628
  5. OXYGEN [Concomitant]
     Dosage: 2 L ON EXERTION
     Dates: start: 20130617
  6. MAGNESIUM OXIDE [Concomitant]
     Dates: start: 20130617
  7. KLOR CON [Concomitant]
     Dates: start: 20130812

REACTIONS (1)
  - Death [Fatal]
